FAERS Safety Report 8186698 (Version 3)
Quarter: 2014Q1

REPORT INFORMATION
  Report Type: Spontaneous
  Country: US (occurrence: US)
  Receive Date: 20111018
  Receipt Date: 20140331
  Transmission Date: 20141002
  Serious: No
  Sender: FDA-Public Use
  Company Number: US-ASTRAZENECA-2011SE05849

PATIENT
  Age: 62 Year
  Sex: Female
  Weight: 53.5 kg

DRUGS (4)
  1. SYMBICORT [Suspect]
     Indication: ASTHMA
     Dosage: 160/4.5, 2  PUFF TWICE A DAY/BID/2 PUFFS A DAY, ONE IN THE MORNING AND ONE AT NIGHT
     Route: 055
     Dates: start: 2010
  2. SYMBICORT [Suspect]
     Indication: ASTHMA
     Dosage: 160/4.5, 1 PUFF TWICE A DAY/BID
     Route: 055
  3. NASACORT [Suspect]
     Route: 065
  4. FLONASE [Concomitant]
     Indication: MULTIPLE ALLERGIES
     Dosage: 2 SQUIRTS HS

REACTIONS (4)
  - Nasal disorder [Unknown]
  - Dyspnoea [Unknown]
  - Headache [Unknown]
  - Off label use [Unknown]
